FAERS Safety Report 12521733 (Version 1)
Quarter: 2016Q3

REPORT INFORMATION
  Report Type: Spontaneous
  Country: GB (occurrence: GB)
  Receive Date: 20160701
  Receipt Date: 20160701
  Transmission Date: 20161109
  Serious: Yes (Other)
  Sender: FDA-Public Use
  Company Number: GB-JNJFOC-20160700234

PATIENT
  Sex: Male

DRUGS (1)
  1. RISPERIDONE. [Suspect]
     Active Substance: RISPERIDONE
     Indication: PRODUCT USED FOR UNKNOWN INDICATION
     Dosage: PRESCRIBED:0.25 ML; TOOK 2.5 ML; MAXIMUM TWICE DAILY
     Route: 048

REACTIONS (3)
  - Drug dispensing error [Unknown]
  - Malaise [Unknown]
  - Syncope [Unknown]
